FAERS Safety Report 20342874 (Version 1)
Quarter: 2022Q1

REPORT INFORMATION
  Report Type: Spontaneous
  Country: US (occurrence: US)
  Receive Date: 20220117
  Receipt Date: 20220117
  Transmission Date: 20220423
  Serious: Yes (Death, Other)
  Sender: FDA-Public Use
  Company Number: US-BIOVITRUM-2022US00677

PATIENT
  Sex: Female

DRUGS (1)
  1. SYNAGIS [Suspect]
     Active Substance: PALIVIZUMAB
     Indication: Product used for unknown indication
     Dosage: 1.09 ML
     Route: 030

REACTIONS (7)
  - Death [Fatal]
  - Blood loss anaemia [Unknown]
  - Failure to thrive [Unknown]
  - Ventricular septal defect [Unknown]
  - Pulmonary valve stenosis [Unknown]
  - Cardiac murmur [Unknown]
  - Cytogenetic abnormality [Unknown]
